FAERS Safety Report 8086097-9 (Version None)
Quarter: 2012Q1

REPORT INFORMATION
  Report Type: 
  Country: None (occurrence: None)
  Receive Date: 20120128
  Receipt Date: 20110420
  Transmission Date: 20120608
  Serious: No
  Sender: FDA-Public Use
  Company Number: US-ABBOTT-11P-163-0720636-00

PATIENT
  Age: 61 Year
  Sex: Female

DRUGS (14)
  1. ESTRADIOL [Concomitant]
     Indication: HOT FLUSH
     Dosage: 1 MG DAILY
  2. ASPIRIN [Concomitant]
     Indication: PROPHYLAXIS
  3. FLUNISOLIDE [Concomitant]
     Indication: PRODUCT USED FOR UNKNOWN INDICATION
     Dosage: TWO TIMES EACH NOSTRIL DAILY
     Route: 045
  4. HUMIRA [Suspect]
     Indication: RHEUMATOID ARTHRITIS
     Dates: start: 20110101
  5. ASCORBIC ACID [Concomitant]
     Indication: PRODUCT USED FOR UNKNOWN INDICATION
  6. DAILY VITAMINS [Concomitant]
     Indication: PRODUCT USED FOR UNKNOWN INDICATION
  7. PITAVASTATIN [Concomitant]
     Indication: BLOOD CHOLESTEROL INCREASED
     Dosage: 40 MG DAILY
  8. OMEPRAZOLE [Concomitant]
     Indication: GASTROOESOPHAGEAL REFLUX DISEASE
  9. LORATADINE [Concomitant]
     Indication: SEASONAL ALLERGY
  10. CALCIUM [Concomitant]
     Indication: OSTEOPENIA
  11. POTASSIUM CHLORIDE [Concomitant]
     Indication: BLOOD POTASSIUM DECREASED
  12. SINGULAIR [Concomitant]
     Indication: SEASONAL ALLERGY
  13. TRIAMTERENE AND HYDROCHLOROTHIAZIDE [Concomitant]
     Indication: HYPERTENSION
     Dosage: 50-75
  14. FOSAMAX [Concomitant]
     Indication: OSTEOPENIA

REACTIONS (3)
  - INJECTION SITE ERYTHEMA [None]
  - INJECTION SITE SWELLING [None]
  - INJECTION SITE PRURITUS [None]
